FAERS Safety Report 5486553-3 (Version None)
Quarter: 2007Q4

REPORT INFORMATION
  Report Type: 
  Country: None (occurrence: None)
  Receive Date: 20071016
  Receipt Date: 20070929
  Transmission Date: 20080405
  Serious: Yes (Other)
  Sender: FDA-Public Use
  Company Number: IT-BAYER-200715871GDS

PATIENT
  Age: 26 Year
  Sex: Male

DRUGS (1)
  1. ASPIRIN [Suspect]
     Indication: INFLUENZA
     Dosage: TOTAL DAILY DOSE: 500 MG  UNIT DOSE: 500 MG
     Route: 048
     Dates: start: 20070901, end: 20070902

REACTIONS (1)
  - SUPRAVENTRICULAR TACHYCARDIA [None]
